FAERS Safety Report 24080087 (Version 1)
Quarter: 2024Q3

REPORT INFORMATION
  Report Type: Spontaneous
  Country: GB (occurrence: GB)
  Receive Date: 20240711
  Receipt Date: 20240711
  Transmission Date: 20241017
  Serious: Yes (Hospitalization, Other)
  Sender: TEVA
  Company Number: None

PATIENT

DRUGS (5)
  1. DOXAZOSIN [Suspect]
     Active Substance: DOXAZOSIN MESYLATE
  2. FUROSEMIDE [Suspect]
     Active Substance: FUROSEMIDE
  3. AMLODIPINE [Suspect]
     Active Substance: AMLODIPINE BESYLATE
  4. ATENOLOL [Suspect]
     Active Substance: ATENOLOL
  5. PERINDOPRIL [Suspect]
     Active Substance: PERINDOPRIL

REACTIONS (2)
  - Fall [Recovering/Resolving]
  - Orthostatic hypotension [Recovered/Resolved]
